FAERS Safety Report 20197803 (Version 2)
Quarter: 2023Q1

REPORT INFORMATION
  Report Type: Report from Study
  Country: LB (occurrence: LB)
  Receive Date: 20211217
  Receipt Date: 20230206
  Transmission Date: 20230417
  Serious: Yes (Hospitalization, Other)
  Sender: FDA-Public Use
  Company Number: LB-SUN PHARMACEUTICAL INDUSTRIES LTD-2021R1-320855

PATIENT

DRUGS (7)
  1. PREDNISONE [Suspect]
     Active Substance: PREDNISONE
     Indication: Diffuse large B-cell lymphoma
     Dosage: UNK (60 MG/M 2 FROM DAYS 1 TO 5)
     Route: 065
  2. DOXORUBICIN [Suspect]
     Active Substance: DOXORUBICIN
     Indication: Diffuse large B-cell lymphoma
     Dosage: UNK (75 MG/M 2 ON DAY 1)
     Route: 065
  3. BLEOMYCIN [Suspect]
     Active Substance: BLEOMYCIN SULFATE
     Indication: Diffuse large B-cell lymphoma
     Dosage: UNK (10 MG ON DAYS 1 AND 5)
     Route: 065
  4. CYCLOPHOSPHAMIDE [Suspect]
     Active Substance: CYCLOPHOSPHAMIDE
     Indication: Diffuse large B-cell lymphoma
     Dosage: UNK (1200 MG/M 2)
     Route: 065
  5. RITUXIMAB [Suspect]
     Active Substance: RITUXIMAB
     Indication: Diffuse large B-cell lymphoma
     Dosage: UNK (375 MG/M 2 ON DAY 1)
     Route: 065
  6. VINDESINE [Suspect]
     Active Substance: VINDESINE
     Indication: Diffuse large B-cell lymphoma
     Dosage: UNK
     Route: 065
  7. FILGRASTIM [Concomitant]
     Active Substance: FILGRASTIM
     Indication: Diffuse large B-cell lymphoma
     Dosage: 300 MICROGRAM, DAILY
     Route: 065

REACTIONS (2)
  - Anaemia [Unknown]
  - Febrile neutropenia [Unknown]
